FAERS Safety Report 9179012 (Version 1)
Quarter: 2013Q1

REPORT INFORMATION
  Report Type: Other
  Country: GB (occurrence: GB)
  Receive Date: 20130321
  Receipt Date: 20130321
  Transmission Date: 20140127
  Serious: Yes (Other)
  Sender: FDA-Public Use
  Company Number: GB-WATSON-2013-03943

PATIENT
  Age: 77 Year
  Sex: Female
  Weight: 57 kg

DRUGS (3)
  1. SIMVASTATIN (UNKNOWN) [Suspect]
     Indication: BLOOD CHOLESTEROL INCREASED
     Dosage: 20MG  6 MONTHS DURATION
     Route: 048
     Dates: end: 20121210
  2. THYROXINE [Concomitant]
     Indication: HYPOTHYROIDISM
     Dosage: 125UG STILL TAKING.
     Route: 048
     Dates: start: 2006
  3. ASPIRIN [Concomitant]
     Indication: INTERMITTENT CLAUDICATION
     Dosage: 75MG STILL TAKING.
     Route: 048
     Dates: start: 2006

REACTIONS (3)
  - Sensation of heaviness [Recovering/Resolving]
  - Gait disturbance [Recovering/Resolving]
  - Pain in extremity [Recovering/Resolving]
